FAERS Safety Report 8460638-1 (Version None)
Quarter: 2012Q2

REPORT INFORMATION
  Report Type: 
  Country: None (occurrence: None)
  Receive Date: 20120622
  Receipt Date: 20120613
  Transmission Date: 20120825
  Serious: Yes (Other)
  Sender: FDA-Public Use
  Company Number: US-ROCHE-791138

PATIENT
  Sex: Female
  Weight: 53.572 kg

DRUGS (4)
  1. ACCUTANE [Suspect]
     Indication: ACNE
     Route: 065
  2. ACCUTANE [Suspect]
  3. AMNESTEEM [Suspect]
     Indication: PRODUCT USED FOR UNKNOWN INDICATION
  4. ACCUTANE [Suspect]
     Route: 065
     Dates: start: 20020101, end: 20030101

REACTIONS (10)
  - STRESS [None]
  - CHEILITIS [None]
  - CRYING [None]
  - XEROSIS [None]
  - COLITIS ULCERATIVE [None]
  - MALNUTRITION [None]
  - IRRITABLE BOWEL SYNDROME [None]
  - DEPRESSION [None]
  - SUICIDAL IDEATION [None]
  - INFLAMMATORY BOWEL DISEASE [None]
